FAERS Safety Report 14330618 (Version 1)
Quarter: 2017Q4

REPORT INFORMATION
  Report Type: Spontaneous
  Country: US (occurrence: US)
  Receive Date: 20171227
  Receipt Date: 20171227
  Transmission Date: 20180321
  Serious: No
  Sender: FDA-Public Use
  Company Number: US-009507513-1711USA013188

PATIENT
  Sex: Female
  Weight: 62.59 kg

DRUGS (1)
  1. NEXPLANON [Suspect]
     Active Substance: ETONOGESTREL
     Indication: CONTRACEPTION
     Dosage: 1 ROD UP TO 3 YEARS, IMPLANT IN LEFT ARM
     Route: 059
     Dates: start: 201605

REACTIONS (4)
  - Menstruation irregular [Unknown]
  - Fatigue [Unknown]
  - Depression [Unknown]
  - Asthenia [Unknown]

NARRATIVE: CASE EVENT DATE: 2016
